FAERS Safety Report 9225755 (Version 1)
Quarter: 2013Q2

REPORT INFORMATION
  Report Type: Spontaneous
  Country: IT (occurrence: IT)
  Receive Date: 20130411
  Receipt Date: 20130411
  Transmission Date: 20140414
  Serious: Yes (Hospitalization)
  Sender: FDA-Public Use
  Company Number: IT-GLAXOSMITHKLINE-B0882887A

PATIENT
  Age: 55 Year
  Sex: Female

DRUGS (2)
  1. TYVERB [Suspect]
     Indication: BREAST CANCER
     Dosage: 750MG PER DAY
     Route: 048
     Dates: start: 20120925, end: 20130211
  2. XELODA [Concomitant]
     Indication: BREAST CANCER
     Dosage: 300MG PER DAY
     Route: 048
     Dates: start: 20120925, end: 20130211

REACTIONS (4)
  - Dermatitis bullous [Recovered/Resolved]
  - Pruritus [Recovered/Resolved]
  - Rash pustular [Recovered/Resolved]
  - Superinfection [Recovered/Resolved]
